FAERS Safety Report 7069916-4 (Version None)
Quarter: 2010Q4

REPORT INFORMATION
  Report Type: 
  Country: None (occurrence: None)
  Receive Date: 20101028
  Receipt Date: 20100701
  Transmission Date: 20110411
  Serious: No
  Sender: FDA-Public Use
  Company Number: US-WYE-H16254610

PATIENT
  Sex: Female

DRUGS (1)
  1. ADVIL [Suspect]
     Dosage: DOSE NOT PROVIDED; ^TOOK THE PRODUCT OCCASSIONALLY^
     Route: 065

REACTIONS (1)
  - COELIAC DISEASE [None]
